FAERS Safety Report 17581152 (Version 1)
Quarter: 2020Q1

REPORT INFORMATION
  Report Type: Spontaneous
  Country: DE (occurrence: DE)
  Receive Date: 20200325
  Receipt Date: 20200325
  Transmission Date: 20200409
  Serious: Yes (Death, Hospitalization, Other)
  Sender: FDA-Public Use
  Company Number: DE-GILEAD-2019-0434518

PATIENT
  Age: 68 Year
  Sex: Male
  Weight: 88 kg

DRUGS (20)
  1. MOVICOL PLAIN [Concomitant]
     Active Substance: POLYETHYLENE GLYCOL 3350\POTASSIUM CHLORIDE\SODIUM BICARBONATE\SODIUM CHLORIDE
     Indication: CONSTIPATION
     Route: 048
  2. FOLIC ACID. [Concomitant]
     Active Substance: FOLIC ACID
     Route: 048
  3. SUMMAVIT [VITAMINS NOS] [Concomitant]
     Route: 048
  4. PALLADON COMP [Concomitant]
     Route: 048
  5. IFOSFAMIDE. [Concomitant]
     Active Substance: IFOSFAMIDE
  6. CARBOPLATIN. [Concomitant]
     Active Substance: CARBOPLATIN
  7. L THYROXIN [Concomitant]
     Active Substance: LEVOTHYROXINE SODIUM
     Route: 048
  8. YESCARTA [Suspect]
     Active Substance: AXICABTAGENE CILOLEUCEL
     Indication: DIFFUSE LARGE B-CELL LYMPHOMA
     Dosage: UNK
     Route: 042
     Dates: start: 20191118, end: 20191118
  9. PANTOPRAZOL [PANTOPRAZOLE] [Concomitant]
     Active Substance: PANTOPRAZOLE
     Dosage: 40 MG, UNK
     Route: 048
  10. MIRTAZAPIN [Concomitant]
     Active Substance: MIRTAZAPINE
     Dosage: 15 MG, UNK
     Route: 048
  11. ETOPOSIDE. [Concomitant]
     Active Substance: ETOPOSIDE
  12. COTRIM FORTE [Concomitant]
     Active Substance: SULFAMETHOXAZOLE\TRIMETHOPRIM
     Route: 048
  13. NOXAFIL [Concomitant]
     Active Substance: POSACONAZOLE
     Route: 048
  14. PIXANTRONE [Concomitant]
     Active Substance: PIXANTRONE
  15. JANUVIA [Concomitant]
     Active Substance: SITAGLIPTIN PHOSPHATE
     Dosage: 25 MG, UNK
     Route: 048
  16. HYDROMORPHONE [Concomitant]
     Active Substance: HYDROMORPHONE
     Dosage: 8 MG, UNK
     Route: 048
  17. RITUXIMAB. [Concomitant]
     Active Substance: RITUXIMAB
  18. ACICLOVIR [ACICLOVIR SODIUM] [Concomitant]
     Active Substance: ACYCLOVIR SODIUM
     Route: 048
  19. LEVETIRACETAM. [Concomitant]
     Active Substance: LEVETIRACETAM
     Route: 048
  20. HYDROCORTISON [HYDROCORTISONE ACETATE] [Concomitant]
     Route: 048

REACTIONS (2)
  - Haemorrhage [Fatal]
  - Sepsis [Fatal]

NARRATIVE: CASE EVENT DATE: 20191227
